FAERS Safety Report 16606360 (Version 1)
Quarter: 2019Q3

REPORT INFORMATION
  Report Type: Spontaneous
  Country: US (occurrence: US)
  Receive Date: 20190722
  Receipt Date: 20190722
  Transmission Date: 20191004
  Serious: Yes (Other)
  Sender: FDA-Public Use
  Company Number: US-009507513-1907USA011567

PATIENT
  Age: 59 Year
  Sex: Male
  Weight: 118 kg

DRUGS (2)
  1. CUBICIN [Suspect]
     Active Substance: DAPTOMYCIN
     Dosage: 800 MILLIGRAM, EVERY 48H
     Route: 042
  2. CUBICIN [Suspect]
     Active Substance: DAPTOMYCIN
     Indication: STAPHYLOCOCCAL BACTERAEMIA
     Dosage: 8 MILLIGRAM/KILOGRAM, COMPLETE THE COURSE
     Route: 042

REACTIONS (3)
  - Spinal cord infection [Unknown]
  - Multiple-drug resistance [Unknown]
  - Enterococcal infection [Unknown]
